FAERS Safety Report 7232623-9 (Version None)
Quarter: 2011Q1

REPORT INFORMATION
  Report Type: 
  Country: None (occurrence: None)
  Receive Date: 20110112
  Receipt Date: 20110112
  Transmission Date: 20110831
  Serious: Yes (Life-Threatening, Other)
  Sender: FDA-Public Use
  Company Number: None

PATIENT
  Age: 59 Year
  Sex: Female
  Weight: 60.782 kg

DRUGS (2)
  1. BETASERON [Suspect]
     Indication: MULTIPLE SCLEROSIS
     Dosage: .25MG EVERY OTHER DAY SQ
     Route: 058
     Dates: start: 20081116, end: 20100102
  2. BETASERON [Suspect]
     Indication: MULTIPLE SCLEROSIS
     Dosage: .25MG EVERY OTHER DAY SQ
     Route: 058
     Dates: start: 20110101

REACTIONS (5)
  - RASH MACULAR [None]
  - URTICARIA [None]
  - INJECTION SITE PRURITUS [None]
  - PRURITUS [None]
  - RASH [None]
